FAERS Safety Report 9321055 (Version 1)
Quarter: 2013Q2

REPORT INFORMATION
  Report Type: Spontaneous
  Country: FI (occurrence: FI)
  Receive Date: 20130531
  Receipt Date: 20130531
  Transmission Date: 20140414
  Serious: Yes (Life-Threatening, Hospitalization, Disabling, Other)
  Sender: FDA-Public Use
  Company Number: FI-009507513-1305FIN012507

PATIENT
  Age: 74 Year
  Sex: Male

DRUGS (11)
  1. BRIDION [Suspect]
     Indication: MUSCLE RELAXANT THERAPY
     Dosage: 200 MG, QD
     Route: 042
     Dates: start: 20130429, end: 20130429
  2. ESMERON [Concomitant]
     Indication: MUSCLE RELAXANT THERAPY
     Dosage: UNK
     Route: 042
     Dates: start: 20130429, end: 20130429
  3. NEO-SYNEPHRINE [Concomitant]
     Indication: BLOOD PRESSURE MANAGEMENT
     Dosage: 0.4 MG, QD
     Dates: start: 2013
  4. NEO-SYNEPHRINE [Concomitant]
     Dosage: UNK
  5. PROPOFOL [Concomitant]
     Indication: GENERAL ANAESTHESIA
     Dosage: UNK
     Route: 042
     Dates: start: 20130429, end: 20130429
  6. ULTIVA [Concomitant]
     Indication: GENERAL ANAESTHESIA
     Dosage: UNK
     Route: 042
     Dates: start: 20130429, end: 20130429
  7. FENTANYL [Concomitant]
     Indication: GENERAL ANAESTHESIA
     Dosage: UNK
     Route: 042
     Dates: start: 20130429, end: 20130429
  8. PERFALGAN [Concomitant]
     Indication: ANALGESIC THERAPY
     Dosage: UNK
     Route: 042
     Dates: start: 20130429, end: 20130429
  9. AMLORATIO [Concomitant]
     Indication: HYPERTENSION
     Dosage: 5 MG, QD
     Route: 048
  10. LOSARTAN POTASSIUM [Concomitant]
     Indication: HYPERTENSION
     Dosage: 5 MG, ONCE
     Route: 048
  11. PRIMASPAN [Concomitant]
     Indication: PROPHYLAXIS
     Dosage: 100 MG, ONCE
     Route: 048

REACTIONS (3)
  - Cardiac arrest [Recovered/Resolved]
  - Myocardial ischaemia [Recovered/Resolved]
  - Anaphylactic reaction [Recovered/Resolved]
